FAERS Safety Report 10235839 (Version 1)
Quarter: 2014Q2

REPORT INFORMATION
  Report Type: Spontaneous
  Country: CO (occurrence: CO)
  Receive Date: 20140613
  Receipt Date: 20140613
  Transmission Date: 20141212
  Serious: Yes (Life-Threatening, Hospitalization, Other)
  Sender: FDA-Public Use
  Company Number: CO-INCYTE CORPORATION-2014IN001549

PATIENT
  Sex: Male

DRUGS (2)
  1. JAKAVI [Suspect]
     Indication: MYELOFIBROSIS
     Dosage: UNK UKN, UNK
     Route: 065
  2. JAKAVI [Suspect]
     Dosage: UNK UKN, UNK

REACTIONS (2)
  - Appendicitis [Recovered/Resolved]
  - Peritonitis [Recovered/Resolved]
